FAERS Safety Report 14731623 (Version 1)
Quarter: 2018Q2

REPORT INFORMATION
  Report Type: Report from Study
  Country: US (occurrence: US)
  Receive Date: 20180407
  Receipt Date: 20180407
  Transmission Date: 20180711
  Serious: Yes (Death)
  Sender: FDA-Public Use
  Company Number: US-ROCHE-2101407

PATIENT
  Age: 78 Year
  Sex: Male
  Weight: 143.96 kg

DRUGS (2)
  1. RITUXAN [Suspect]
     Active Substance: RITUXIMAB
     Indication: B-CELL LYMPHOMA
     Dosage: 28 DAY CYCLE, DAY 1, 8 AND 15 ;ONGOING: NO
     Route: 042
  2. RITUXAN [Suspect]
     Active Substance: RITUXIMAB
     Indication: NON-HODGKIN^S LYMPHOMA
     Dosage: 28 DAY CYCLE, DAY 1, 8, 15 AND 22 ;ONGOING: NO
     Route: 042
     Dates: start: 20170829, end: 20171018

REACTIONS (2)
  - Drug ineffective [Unknown]
  - Non-Hodgkin^s lymphoma [Fatal]

NARRATIVE: CASE EVENT DATE: 20180302
